FAERS Safety Report 8362125-8 (Version None)
Quarter: 2012Q2

REPORT INFORMATION
  Report Type: 
  Country: None (occurrence: None)
  Receive Date: 20120515
  Receipt Date: 20120510
  Transmission Date: 20120825
  Serious: Yes (Other)
  Sender: FDA-Public Use
  Company Number: PHHY2012AU019940

PATIENT
  Sex: Female

DRUGS (2)
  1. CLOZARIL [Suspect]
     Dosage: 250 MG, UNK
     Route: 048
     Dates: start: 19971003
  2. CLOZAPINE [Suspect]
     Dosage: 200 MG, UNK
     Dates: start: 19971003

REACTIONS (7)
  - NEOPLASM MALIGNANT [None]
  - WHITE BLOOD CELL COUNT INCREASED [None]
  - LYMPHOMA [None]
  - NEUTROPENIA [None]
  - NEUTROPHIL COUNT INCREASED [None]
  - WHITE BLOOD CELL COUNT DECREASED [None]
  - NEUTROPHIL COUNT DECREASED [None]
